FAERS Safety Report 10619834 (Version 1)
Quarter: 2014Q4

REPORT INFORMATION
  Report Type: Spontaneous
  Country: US (occurrence: None)
  Receive Date: 20141201
  Receipt Date: 20141201
  Transmission Date: 20150529
  Serious: Yes (Disabling)
  Sender: FDA-Public Use
  Company Number: None

PATIENT
  Age: 58 Year
  Sex: Male
  Weight: 90.72 kg

DRUGS (1)
  1. WALGREEN NICOTINE [Suspect]
     Active Substance: NICOTINE
     Indication: SMOKING CESSATION THERAPY

REACTIONS (7)
  - Alopecia [None]
  - Anxiety [None]
  - Chest pain [None]
  - Hypoaesthesia [None]
  - Drug dependence [None]
  - Haemorrhage subcutaneous [None]
  - Hypertension [None]

NARRATIVE: CASE EVENT DATE: 20141130
